FAERS Safety Report 7765121-4 (Version None)
Quarter: 2011Q3

REPORT INFORMATION
  Report Type: 
  Country: None (occurrence: None)
  Receive Date: 20110921
  Receipt Date: 20110919
  Transmission Date: 20111222
  Serious: Yes (Death)
  Sender: FDA-Public Use
  Company Number: BE-ROCHE-803230

PATIENT
  Sex: Male
  Weight: 72 kg

DRUGS (1)
  1. BEVACIZUMAB [Suspect]
     Route: 065

REACTIONS (1)
  - MYOCARDIAL INFARCTION [None]
